FAERS Safety Report 10042554 (Version 2)
Quarter: 2014Q2

REPORT INFORMATION
  Report Type: Spontaneous
  Country: US (occurrence: US)
  Receive Date: 20140327
  Receipt Date: 20140409
  Transmission Date: 20141212
  Serious: No
  Sender: FDA-Public Use
  Company Number: US-ALEXION-A201400857

PATIENT
  Sex: 0

DRUGS (1)
  1. SOLIRIS 300MG [Suspect]
     Indication: HAEMOLYTIC URAEMIC SYNDROME
     Dosage: 300 MG, EVERY 21 DAYS
     Route: 042
     Dates: start: 20140228

REACTIONS (2)
  - Neutropenia [Not Recovered/Not Resolved]
  - Pneumococcal infection [Recovered/Resolved]
